FAERS Safety Report 5358252-X (Version None)
Quarter: 2007Q2

REPORT INFORMATION
  Report Type: 
  Country: None (occurrence: None)
  Receive Date: 20070530
  Receipt Date: 20061103
  Transmission Date: 20071010
  Serious: Yes (Hospitalization)
  Sender: FDA-Public Use
  Company Number: US200603002984

PATIENT
  Age: 58 Year
  Sex: Male
  Weight: 74.8 kg

DRUGS (5)
  1. ZYPREXA ZYDIS [Suspect]
     Dosage: SEE IMAGE
     Route: 048
     Dates: start: 20030501, end: 20050101
  2. PLENDIL (SWE/ (FELODIPINE) [Concomitant]
  3. VALPROIC ACID [Concomitant]
  4. QUETIAPINE FUMARATE [Concomitant]
  5. HALDOL SOLUTAB [Concomitant]

REACTIONS (6)
  - ANXIETY [None]
  - BLOOD CHOLESTEROL INCREASED [None]
  - DIABETES MELLITUS [None]
  - HYPERGLYCAEMIA [None]
  - METABOLIC DISORDER [None]
  - PRESCRIBED OVERDOSE [None]
